FAERS Safety Report 18756740 (Version 1)
Quarter: 2021Q1

REPORT INFORMATION
  Report Type: Spontaneous
  Country: US (occurrence: US)
  Receive Date: 20210118
  Receipt Date: 20210118
  Transmission Date: 20210419
  Serious: Yes (Other)
  Sender: FDA-Public Use
  Company Number: None

PATIENT
  Age: 74 Year
  Sex: Female
  Weight: 99.45 kg

DRUGS (22)
  1. ASPIRIN. [Concomitant]
     Active Substance: ASPIRIN
  2. FLONASE [Concomitant]
     Active Substance: FLUTICASONE PROPIONATE
  3. ALBUTEROL HFA [Concomitant]
     Active Substance: ALBUTEROL SULFATE
  4. BUSPIRONE [Concomitant]
     Active Substance: BUSPIRONE HYDROCHLORIDE
  5. POTASSIUM [Concomitant]
     Active Substance: POTASSIUM
  6. CETIRIZINE [Concomitant]
     Active Substance: CETIRIZINE HYDROCHLORIDE
  7. ISOSORBIDE. [Concomitant]
     Active Substance: ISOSORBIDE
  8. LABETOLOL [Concomitant]
     Active Substance: LABETALOL HYDROCHLORIDE
  9. LEVOFLOXACIN. [Concomitant]
     Active Substance: LEVOFLOXACIN
  10. VITAMIN D [Concomitant]
     Active Substance: VITAMIN D NOS
  11. INLYTA [Suspect]
     Active Substance: AXITINIB
     Indication: RENAL CANCER
     Route: 048
     Dates: start: 20201026
  12. GABAPENTIN. [Concomitant]
     Active Substance: GABAPENTIN
  13. VITAMIN B COMPLEX [Concomitant]
     Active Substance: CYANOCOBALAMIN\DEXPANTHENOL\NIACINAMIDE\PYRIDOXINE HYDROCHLORIDE\RIBOFLAVIN 5^-PHOSPHATE SODIUM\THIAMINE HYDROCHLORIDE\VITAMIN B COMPLEX
  14. GLIPIZIDE. [Concomitant]
     Active Substance: GLIPIZIDE
  15. COLACE [Concomitant]
     Active Substance: DOCUSATE SODIUM
  16. LIPITOR [Concomitant]
     Active Substance: ATORVASTATIN CALCIUM
  17. PROCHLORPERAZINE. [Concomitant]
     Active Substance: PROCHLORPERAZINE
  18. TAMSULOSIN [Concomitant]
     Active Substance: TAMSULOSIN
  19. CYANCOBALAMIN [Concomitant]
     Active Substance: CYANOCOBALAMIN
  20. LIDOCAINE/PRILOCAINE TOPICAL [Concomitant]
  21. DICLOFENAC [Concomitant]
     Active Substance: DICLOFENAC
  22. TRAMADOL. [Concomitant]
     Active Substance: TRAMADOL

REACTIONS (1)
  - Hospice care [None]

NARRATIVE: CASE EVENT DATE: 20210118
